FAERS Safety Report 9746803 (Version 2)
Quarter: 2013Q4

REPORT INFORMATION
  Report Type: Report from Study
  Country: AR (occurrence: AR)
  Receive Date: 20131211
  Receipt Date: 20131211
  Transmission Date: 20140711
  Serious: Yes (Other)
  Sender: FDA-Public Use
  Company Number: PHHY2012AR049515

PATIENT
  Age: 49 Year
  Sex: Male

DRUGS (3)
  1. GALVUS MET [Suspect]
     Indication: DIABETES MELLITUS
     Dosage: 2 DF (850/50 MG), DAILY
     Route: 048
     Dates: start: 201207, end: 201301
  2. GALVUS MET [Suspect]
     Dosage: 2 DF (1000/50 MG), DAILY
     Route: 048
     Dates: start: 201301
  3. DIOVAN [Suspect]
     Dosage: 1 TABLET (320 MG), UNK

REACTIONS (8)
  - Maculopathy [Not Recovered/Not Resolved]
  - Condition aggravated [Not Recovered/Not Resolved]
  - Macular oedema [Not Recovered/Not Resolved]
  - Eye haemorrhage [Not Recovered/Not Resolved]
  - Vision blurred [Not Recovered/Not Resolved]
  - Visual impairment [Not Recovered/Not Resolved]
  - Eye injury [Not Recovered/Not Resolved]
  - Diabetes mellitus inadequate control [Not Recovered/Not Resolved]
